FAERS Safety Report 10263478 (Version 1)
Quarter: 2014Q2

REPORT INFORMATION
  Report Type: Spontaneous
  Country: US (occurrence: US)
  Receive Date: 20140626
  Receipt Date: 20140626
  Transmission Date: 20141212
  Serious: No
  Sender: FDA-Public Use
  Company Number: US-ASTRAZENECA-2014SE31418

PATIENT
  Age: 25761 Day
  Sex: Male
  Weight: 104.3 kg

DRUGS (5)
  1. BRILINTA [Suspect]
     Indication: STENT PLACEMENT
     Route: 048
     Dates: start: 20140506
  2. LEVEMIR [Concomitant]
     Indication: DIABETES MELLITUS
     Dosage: 30, DAILY
     Route: 050
  3. HUMALOG [Concomitant]
     Indication: DIABETES MELLITUS
     Route: 050
  4. PLAVIX [Concomitant]
     Indication: COAGULATION TIME SHORTENED
     Route: 048
     Dates: start: 20140507
  5. RANEXA [Concomitant]
     Indication: ANTICOAGULANT THERAPY
     Route: 048

REACTIONS (2)
  - Headache [Not Recovered/Not Resolved]
  - Intentional product misuse [Unknown]
